FAERS Safety Report 7972955-X (Version None)
Quarter: 2011Q4

REPORT INFORMATION
  Report Type: 
  Country: None (occurrence: None)
  Receive Date: 20111213
  Receipt Date: 20111206
  Transmission Date: 20120403
  Serious: Yes (Hospitalization, Other)
  Sender: FDA-Public Use
  Company Number: FR-PFIZER INC-2011292830

PATIENT
  Age: 51 Year
  Sex: Male

DRUGS (3)
  1. PRIMPERAN TAB [Concomitant]
  2. PF-02341066 [Suspect]
     Indication: LUNG NEOPLASM MALIGNANT
     Dosage: 250 MG, UNK
     Dates: start: 20110101, end: 20111128
  3. ESIDRIX [Concomitant]
     Dosage: UNK
     Dates: start: 20080101

REACTIONS (8)
  - PANCREATITIS ACUTE [None]
  - PROTEINURIA [None]
  - HYPOALBUMINAEMIA [None]
  - WHITE BLOOD CELL COUNT INCREASED [None]
  - C-REACTIVE PROTEIN INCREASED [None]
  - HAEMATURIA [None]
  - GLOMERULONEPHROPATHY [None]
  - RENAL FAILURE ACUTE [None]
